FAERS Safety Report 6007331-2 (Version None)
Quarter: 2008Q4

REPORT INFORMATION
  Report Type: 
  Country: None (occurrence: None)
  Receive Date: 20081217
  Receipt Date: 20080311
  Transmission Date: 20090506
  Serious: No
  Sender: FDA-Public Use
  Company Number: US-ASTRAZENECA-2008UW04938

PATIENT
  Age: 76 Year
  Sex: Female

DRUGS (4)
  1. CRESTOR [Suspect]
     Route: 048
     Dates: start: 20080301
  2. NORMIDE [Concomitant]
  3. TOPROL-XL [Concomitant]
  4. AVAPRO [Concomitant]

REACTIONS (1)
  - PAIN IN EXTREMITY [None]
